FAERS Safety Report 8924368 (Version 2)
Quarter: 2012Q4

REPORT INFORMATION
  Report Type: 
  Country: IE (occurrence: IE)
  Receive Date: 20121126
  Receipt Date: 20121128
  Transmission Date: 20130627
  Serious: Yes (Death)
  Sender: FDA-Public Use
  Company Number: IE-GLAXOSMITHKLINE-B0847558A

PATIENT
  Age: 35 Year
  Sex: Female

DRUGS (3)
  1. SEROXAT [Suspect]
     Indication: DEPRESSION
     Route: 065
  2. SERTRALINE [Concomitant]
  3. ANTI-HISTAMINE [Concomitant]

REACTIONS (8)
  - Completed suicide [Fatal]
  - Multiple injuries [Fatal]
  - Exposure during pregnancy [Unknown]
  - Anxiety [Unknown]
  - Depressed mood [Unknown]
  - Decreased interest [Unknown]
  - Emotional distress [Unknown]
  - Fall [Not Recovered/Not Resolved]
